FAERS Safety Report 10459530 (Version 4)
Quarter: 2015Q1

REPORT INFORMATION
  Report Type: Spontaneous
  Country: DK (occurrence: DK)
  Receive Date: 20140917
  Receipt Date: 20150218
  Transmission Date: 20150720
  Serious: Yes (Hospitalization, Other)
  Sender: FDA-Public Use
  Company Number: PHHY2014DK117141

PATIENT
  Age: 47 Year
  Sex: Female

DRUGS (2)
  1. LINDYNETTE [Suspect]
     Active Substance: ETHINYL ESTRADIOL\GESTODENE
     Indication: ORAL CONTRACEPTION
     Route: 048
  2. HJERTEMAGNYL [Concomitant]
     Active Substance: ASPIRIN\MAGNESIUM OXIDE

REACTIONS (13)
  - Hypertonia [Unknown]
  - Sensory disturbance [Unknown]
  - Musculoskeletal pain [Unknown]
  - Hypertension [Unknown]
  - Disturbance in attention [Not Recovered/Not Resolved]
  - Dysarthria [Unknown]
  - Hemiparesis [Unknown]
  - Muscular weakness [Unknown]
  - Coordination abnormal [Not Recovered/Not Resolved]
  - Memory impairment [Not Recovered/Not Resolved]
  - Cerebral infarction [Recovered/Resolved with Sequelae]
  - Cerebral artery embolism [Recovered/Resolved with Sequelae]
  - Confusional state [Unknown]

NARRATIVE: CASE EVENT DATE: 201004
